FAERS Safety Report 18851264 (Version 1)
Quarter: 2021Q1

REPORT INFORMATION
  Report Type: Spontaneous
  Country: US (occurrence: US)
  Receive Date: 20210204
  Receipt Date: 20210204
  Transmission Date: 20210420
  Serious: No
  Sender: FDA-Public Use
  Company Number: None

PATIENT
  Age: 55 Year
  Sex: Female
  Weight: 58.05 kg

DRUGS (8)
  1. VALACYCLOVIR [Concomitant]
     Active Substance: VALACYCLOVIR HYDROCHLORIDE
  2. EVEROLIMUS. [Suspect]
     Active Substance: EVEROLIMUS
     Indication: BREAST CANCER
     Route: 048
     Dates: start: 20200910, end: 20210204
  3. NORCO 5?325MG [Concomitant]
  4. GABAPENTIN 400MG [Concomitant]
     Active Substance: GABAPENTIN
  5. LEVAQUIN [Concomitant]
     Active Substance: LEVOFLOXACIN
  6. DEXAMETHASONE 1MG [Concomitant]
  7. LEVOFLOXACIN 750MG [Concomitant]
     Active Substance: LEVOFLOXACIN
  8. EXEMESTANE. [Suspect]
     Active Substance: EXEMESTANE
     Indication: BREAST CANCER
     Route: 048
     Dates: start: 20200910, end: 20210204

REACTIONS (1)
  - Peripheral swelling [None]

NARRATIVE: CASE EVENT DATE: 20210204
